FAERS Safety Report 11327670 (Version 1)
Quarter: 2015Q3

REPORT INFORMATION
  Report Type: Spontaneous
  Country: JP (occurrence: JP)
  Receive Date: 20150731
  Receipt Date: 20150731
  Transmission Date: 20151125
  Serious: Yes (Hospitalization)
  Sender: FDA-Public Use
  Company Number: JP-BAYER-2015-388621

PATIENT
  Sex: Female

DRUGS (3)
  1. MAGNEVIST [Suspect]
     Active Substance: GADOPENTETATE DIMEGLUMINE
     Indication: BREAST CANCER FEMALE
  2. MAGNEVIST [Suspect]
     Active Substance: GADOPENTETATE DIMEGLUMINE
     Indication: SCAN WITH CONTRAST
     Dosage: 10 ML, ONCE
     Route: 042
     Dates: start: 20150708, end: 20150708
  3. SEISHOKU [Concomitant]
     Active Substance: SODIUM CHLORIDE
     Dosage: 60 ML DAILY DOSE
     Route: 042
     Dates: start: 20150708, end: 20150708

REACTIONS (2)
  - Dyspnoea [Recovered/Resolved]
  - Oxygen saturation decreased [Recovered/Resolved]

NARRATIVE: CASE EVENT DATE: 20150708
